FAERS Safety Report 12068568 (Version 2)
Quarter: 2016Q1

REPORT INFORMATION
  Report Type: Report from Study
  Country: FR (occurrence: FR)
  Receive Date: 20160211
  Receipt Date: 20160211
  Transmission Date: 20160526
  Serious: Yes (Other)
  Sender: FDA-Public Use
  Company Number: FR-CELGENE-FRA-2016021069

PATIENT

DRUGS (2)
  1. EPOETIN BETA [Concomitant]
     Active Substance: ERYTHROPOIETIN
     Indication: MYELODYSPLASTIC SYNDROME
     Route: 058
  2. AZACITIDINE INJECTABLE [Suspect]
     Active Substance: AZACITIDINE
     Indication: MYELODYSPLASTIC SYNDROME
     Dosage: 75 MILLIGRAM/SQ. METER
     Route: 058

REACTIONS (11)
  - Myelodysplastic syndrome [Unknown]
  - Pancreatic carcinoma [Unknown]
  - Febrile neutropenia [Unknown]
  - Cytopenia [Unknown]
  - Adverse drug reaction [Unknown]
  - Acute myeloid leukaemia [Unknown]
  - Febrile bone marrow aplasia [Unknown]
  - Myelodysplastic syndrome transformation [None]
  - Pancytopenia [Unknown]
  - Pleural infection [Unknown]
  - Treatment failure [Unknown]
